FAERS Safety Report 17105385 (Version 3)
Quarter: 2019Q4

REPORT INFORMATION
  Report Type: Spontaneous
  Country: DE (occurrence: DE)
  Receive Date: 20191203
  Receipt Date: 20191226
  Transmission Date: 20200122
  Serious: Yes (Other)
  Sender: FDA-Public Use
  Company Number: DE-TEVA-2019-DE-1145144

PATIENT
  Age: 33 Year
  Sex: Male
  Weight: 80 kg

DRUGS (3)
  1. AMOXICILLIN-RATIOPHARM 1000 MG FILMTABLETTEN [Suspect]
     Active Substance: AMOXICILLIN
     Indication: INFLAMMATION
     Dosage: 2000 MILLIGRAM DAILY; 1-0-1
     Route: 048
     Dates: start: 20190830, end: 20190909
  2. PANTOZOL 40 MG [Concomitant]
     Dosage: 1-0-1
  3. AMOXICILLIN-RATIOPHARM 1000 MG FILMTABLETTEN [Suspect]
     Active Substance: AMOXICILLIN
     Indication: GASTROINTESTINAL INFECTION

REACTIONS (8)
  - Discomfort [Unknown]
  - Headache [Unknown]
  - Meningitis viral [Not Recovered/Not Resolved]
  - Pyrexia [Unknown]
  - Muscle spasms [Unknown]
  - Dysaesthesia [Recovering/Resolving]
  - Neck pain [Unknown]
  - Paraesthesia [Unknown]

NARRATIVE: CASE EVENT DATE: 201909
